FAERS Safety Report 6316672-0 (Version None)
Quarter: 2009Q3

REPORT INFORMATION
  Report Type: 
  Country: None (occurrence: None)
  Receive Date: 20090820
  Receipt Date: 20090813
  Transmission Date: 20100115
  Serious: Yes (Hospitalization, Other)
  Sender: FDA-Public Use
  Company Number: GB-MERCK-0908GBR00040

PATIENT
  Sex: Female
  Weight: 100 kg

DRUGS (6)
  1. JANUVIA [Suspect]
     Indication: TYPE 2 DIABETES MELLITUS
     Route: 048
     Dates: start: 20090223, end: 20090617
  2. CANDESARTAN [Concomitant]
     Indication: HYPERTENSION
     Route: 048
     Dates: end: 20090617
  3. AMILORIDE HYDROCHLORIDE AND FUROSEMIDE [Concomitant]
     Indication: CARDIAC FAILURE
     Route: 048
     Dates: end: 20090617
  4. INDOMETHACIN [Concomitant]
     Indication: HYPERTENSION
     Route: 048
     Dates: end: 20090617
  5. METFORMIN [Concomitant]
     Indication: TYPE 2 DIABETES MELLITUS
     Route: 048
     Dates: start: 20080107, end: 20090617
  6. ORLISTAT [Concomitant]
     Indication: OBESITY
     Route: 048
     Dates: start: 20090223, end: 20090617

REACTIONS (1)
  - RENAL FAILURE ACUTE [None]
